FAERS Safety Report 12941345 (Version 2)
Quarter: 2016Q4

REPORT INFORMATION
  Report Type: Spontaneous
  Country: US (occurrence: US)
  Receive Date: 20161114
  Receipt Date: 20161129
  Transmission Date: 20170207
  Serious: Yes (Hospitalization)
  Sender: FDA-Public Use
  Company Number: US-BIOGEN-2016BI00316606

PATIENT
  Age: 32 Year
  Sex: Female

DRUGS (1)
  1. TYSABRI [Suspect]
     Active Substance: NATALIZUMAB
     Indication: MULTIPLE SCLEROSIS
     Route: 042
     Dates: start: 20150520

REACTIONS (8)
  - Drug dose omission [Unknown]
  - Uhthoff^s phenomenon [Not Recovered/Not Resolved]
  - Aphasia [Unknown]
  - Speech disorder [Recovered/Resolved]
  - Fall [Recovered/Resolved]
  - Muscle spasms [Unknown]
  - Muscle twitching [Unknown]
  - Hypoaesthesia [Not Recovered/Not Resolved]

NARRATIVE: CASE EVENT DATE: 20161018
